FAERS Safety Report 9511137 (Version 4)
Quarter: 2013Q4

REPORT INFORMATION
  Report Type: Report from Study
  Country: IT (occurrence: IT)
  Receive Date: 20130910
  Receipt Date: 20131001
  Transmission Date: 20140711
  Serious: Yes (Death)
  Sender: FDA-Public Use
  Company Number: IT-UCBSA-097108

PATIENT
  Age: 72 Year
  Sex: Male
  Weight: 78 kg

DRUGS (12)
  1. NEUPRO [Suspect]
     Indication: PARKINSON^S DISEASE
     Route: 062
     Dates: start: 20110127, end: 20110712
  2. MADOPAR [Concomitant]
     Indication: PARKINSON^S DISEASE
     Dates: start: 201209, end: 201303
  3. MADOPAR [Concomitant]
     Indication: PARKINSON^S DISEASE
     Dates: start: 201303, end: 20130328
  4. MADOPAR [Concomitant]
     Indication: PARKINSON^S DISEASE
     Dates: start: 20130329, end: 20130802
  5. TRIATEC [Concomitant]
     Indication: HYPERTENSION
     Dates: end: 20130802
  6. CARVEDILOL [Concomitant]
     Indication: CARDIAC FAILURE
     Dates: end: 20130802
  7. AMIODAR [Concomitant]
     Indication: ARRHYTHMIA SUPRAVENTRICULAR
     Dates: end: 20130802
  8. XATRAL [Concomitant]
     Indication: PROSTATOMEGALY
     Dates: start: 201107, end: 20130802
  9. OSTELIN [Concomitant]
     Indication: SPINAL FRACTURE
     Dosage: 1.5 ML / 40.000 UI MLVIAL
     Dates: start: 201109, end: 20130802
  10. SEROQUEL [Concomitant]
     Indication: HALLUCINATION
     Dates: start: 201209, end: 20130328
  11. SEROQUEL [Concomitant]
     Indication: HALLUCINATION
     Dates: start: 20130329, end: 20130802
  12. EXELON [Concomitant]
     Indication: DEMENTIA
     Dosage: PATCH
     Dates: start: 20121124, end: 20130802

REACTIONS (1)
  - Sepsis [Fatal]
